FAERS Safety Report 8797139 (Version 2)
Quarter: 2015Q1

REPORT INFORMATION
  Report Type: Report from Study
  Country: US (occurrence: US)
  Receive Date: 20120919
  Receipt Date: 20150309
  Transmission Date: 20150721
  Serious: Yes (Death)
  Sender: FDA-Public Use
  Company Number: US-ROCHE-1104927

PATIENT
  Sex: Male

DRUGS (3)
  1. ARANESP [Concomitant]
     Active Substance: DARBEPOETIN ALFA
     Route: 042
  2. NEXAVAR [Concomitant]
     Active Substance: SORAFENIB
  3. AVASTIN [Suspect]
     Active Substance: BEVACIZUMAB
     Indication: METASTATIC MALIGNANT MELANOMA
     Route: 042

REACTIONS (4)
  - Rash [Unknown]
  - Off label use [Unknown]
  - Death [Fatal]
  - Protein urine present [Unknown]
